FAERS Safety Report 4597006-9 (Version None)
Quarter: 2005Q1

REPORT INFORMATION
  Report Type: 
  Country: None (occurrence: None)
  Receive Date: 20050228
  Receipt Date: 20050215
  Transmission Date: 20050727
  Serious: Yes (Other)
  Sender: FDA-Public Use
  Company Number: 2005031774

PATIENT
  Sex: Male

DRUGS (2)
  1. GEODON [Suspect]
     Indication: ILL-DEFINED DISORDER
     Dosage: 320 MG
  2. VALPROATE SODIUM [Suspect]
     Indication: ILL-DEFINED DISORDER

REACTIONS (1)
  - PANCREATITIS [None]
